FAERS Safety Report 25081707 (Version 3)
Quarter: 2025Q2

REPORT INFORMATION
  Report Type: Spontaneous
  Country: JP (occurrence: JP)
  Receive Date: 20250316
  Receipt Date: 20250414
  Transmission Date: 20250716
  Serious: Yes (Death, Other)
  Sender: GLAXOSMITHKLINE
  Company Number: JP-GSK-JP2024JPN145503

PATIENT

DRUGS (12)
  1. DAPRODUSTAT [Suspect]
     Active Substance: DAPRODUSTAT
     Indication: Nephrogenic anaemia
     Dates: start: 20240708, end: 20240715
  2. DAPRODUSTAT [Suspect]
     Active Substance: DAPRODUSTAT
     Dates: start: 20240716
  3. VIBEGRON [Concomitant]
     Active Substance: VIBEGRON
     Indication: Hypertonic bladder
     Dosage: 50, 1D
  4. NEXIUM [Concomitant]
     Active Substance: ESOMEPRAZOLE MAGNESIUM
     Indication: Gastrooesophageal reflux disease
     Dosage: 20, 1D
  5. ASPIRIN [Concomitant]
     Active Substance: ASPIRIN
     Indication: Angina pectoris
     Dosage: 100, 1D
  6. MIYA-BM [Concomitant]
     Active Substance: CLOSTRIDIUM BUTYRICUM SPORES STRAIN M-55
     Indication: Constipation
  7. AMITIZA [Concomitant]
     Active Substance: LUBIPROSTONE
     Indication: Constipation
  8. FUROSEMIDE [Concomitant]
     Active Substance: FUROSEMIDE
     Indication: Oedema
     Dosage: 20, 1D
  9. ISOSORBIDE DINITRATE [Concomitant]
     Active Substance: ISOSORBIDE DINITRATE
     Indication: Angina pectoris
     Dosage: 40, 1D
  10. HERBALS [Concomitant]
     Active Substance: HERBALS
     Indication: Gastritis
     Dosage: UNK, TID
  11. SPIRONOLACTONE [Concomitant]
     Active Substance: SPIRONOLACTONE
     Indication: Oedema
     Dosage: 25, 1D
  12. TULOBUTEROL [Concomitant]
     Active Substance: TULOBUTEROL
     Indication: Asthma

REACTIONS (3)
  - Deep vein thrombosis [Recovered/Resolved]
  - Death [Fatal]
  - Oedema peripheral [Recovered/Resolved]

NARRATIVE: CASE EVENT DATE: 20241106
